FAERS Safety Report 14431580 (Version 1)
Quarter: 2018Q1

REPORT INFORMATION
  Report Type: Spontaneous
  Country: IT (occurrence: IT)
  Receive Date: 20180124
  Receipt Date: 20180124
  Transmission Date: 20180509
  Serious: Yes (Hospitalization, Other)
  Sender: FDA-Public Use
  Company Number: IT-GLENMARK PHARMACEUTICALS-2017GMK025935

PATIENT
  Age: 34 Year
  Sex: Male

DRUGS (6)
  1. LAMOTRIGINE. [Interacting]
     Active Substance: LAMOTRIGINE
     Dosage: 250 MG, QD
     Route: 065
  2. LAMOTRIGINE. [Suspect]
     Active Substance: LAMOTRIGINE
     Indication: TEMPORAL LOBE EPILEPSY
     Dosage: 400 MG, QD
     Route: 065
  3. LAMOTRIGINE. [Interacting]
     Active Substance: LAMOTRIGINE
     Dosage: 300 MG, QD
     Route: 065
  4. VALPROIC ACID. [Interacting]
     Active Substance: VALPROIC ACID
     Indication: TEMPORAL LOBE EPILEPSY
     Dosage: 1000 MG, QD
     Route: 065
  5. LEVETIRACETAM. [Concomitant]
     Active Substance: LEVETIRACETAM
     Indication: TEMPORAL LOBE EPILEPSY
     Route: 065
  6. VALPROIC ACID. [Interacting]
     Active Substance: VALPROIC ACID
     Dosage: UNK, UP TO 1000 MG

REACTIONS (3)
  - Myoclonus [Recovered/Resolved]
  - Toxicity to various agents [Unknown]
  - Drug interaction [Unknown]
